FAERS Safety Report 20183049 (Version 1)
Quarter: 2021Q4

REPORT INFORMATION
  Report Type: Spontaneous
  Country: FR (occurrence: FR)
  Receive Date: 20211214
  Receipt Date: 20211214
  Transmission Date: 20220304
  Serious: Yes (Hospitalization)
  Sender: FDA-Public Use
  Company Number: None

PATIENT
  Age: 64 Year
  Sex: Male
  Weight: 80 kg

DRUGS (2)
  1. CARBOPLATIN [Suspect]
     Active Substance: CARBOPLATIN
     Indication: Peritoneal mesothelioma malignant
     Dosage: 539 MG, CYCLIC (6 CYCLES TOTAL)
     Route: 042
     Dates: start: 20210318, end: 20210706
  2. ALIMTA [Suspect]
     Active Substance: PEMETREXED DISODIUM
     Indication: Peritoneal mesothelioma malignant
     Dosage: 995 MG, CYCLIC (6 CYCLES TOTAL)
     Route: 042
     Dates: start: 20210318, end: 20210706

REACTIONS (2)
  - Hypersensitivity pneumonitis [Not Recovered/Not Resolved]
  - Off label use [Unknown]

NARRATIVE: CASE EVENT DATE: 20210301
